FAERS Safety Report 6437167-X (Version None)
Quarter: 2009Q4

REPORT INFORMATION
  Report Type: 
  Country: None (occurrence: None)
  Receive Date: 20091102
  Receipt Date: 20091026
  Transmission Date: 20100525
  Serious: Yes (Other)
  Sender: FDA-Public Use
  Company Number: AEUSA200900250

PATIENT
  Age: 32 Year
  Sex: Male

DRUGS (4)
  1. GAMUNEX [Suspect]
     Indication: DERMATOMYOSITIS
     Dosage: IV
     Route: 042
     Dates: start: 20090120, end: 20090121
  2. GAMMAGARD [Suspect]
     Indication: DERMATOMYOSITIS
     Dosage: QM; IV
     Route: 042
  3. METHOTREXATE [Concomitant]
  4. PREDNISONE [Concomitant]

REACTIONS (11)
  - BLOOD CREATINE PHOSPHOKINASE INCREASED [None]
  - DRUG INEFFECTIVE [None]
  - ERYTHEMA [None]
  - INFUSION SITE EXTRAVASATION [None]
  - INFUSION SITE PRURITUS [None]
  - INFUSION SITE SWELLING [None]
  - MOVEMENT DISORDER [None]
  - MUSCLE SPASMS [None]
  - MUSCLE TIGHTNESS [None]
  - MYALGIA [None]
  - RASH MACULAR [None]
